FAERS Safety Report 9484322 (Version 1)
Quarter: 2013Q3

REPORT INFORMATION
  Report Type: Spontaneous
  Country: CA (occurrence: CA)
  Receive Date: 20130828
  Receipt Date: 20130828
  Transmission Date: 20140515
  Serious: Yes (Death, Hospitalization)
  Sender: FDA-Public Use
  Company Number: CA-AMGEN-KDL407752

PATIENT
  Age: 66 Year
  Sex: Male
  Weight: 81.7 kg

DRUGS (1)
  1. ENBREL [Suspect]
     Indication: RHEUMATOID ARTHRITIS
     Dosage: UNK UNK, QWK
     Route: 065
     Dates: start: 20090615, end: 20100315

REACTIONS (3)
  - Death [Fatal]
  - Infection [Unknown]
  - Decreased immune responsiveness [Unknown]
